FAERS Safety Report 4341611-1 (Version None)
Quarter: 2004Q2

REPORT INFORMATION
  Report Type: 
  Country: None (occurrence: None)
  Receive Date: 20040420
  Receipt Date: 20040408
  Transmission Date: 20050107
  Serious: Yes (Hospitalization, Other)
  Sender: FDA-Public Use
  Company Number: AU-BRISTOL-MYERS SQUIBB COMPANY-12555363

PATIENT
  Age: 60 Year
  Sex: Female
  Weight: 71 kg

DRUGS (4)
  1. CARBOPLATIN [Suspect]
     Indication: PERITONEAL CARCINOMA
     Route: 042
     Dates: start: 20040223, end: 20040223
  2. PACLITAXEL [Suspect]
     Indication: PERITONEAL CARCINOMA
     Route: 042
     Dates: start: 20040223, end: 20040223
  3. DOXORUBICIN HYDROCHLORIDE [Suspect]
     Indication: PERITONEAL CARCINOMA
     Route: 042
     Dates: start: 20040223, end: 20040223
  4. ZOCOR [Concomitant]
     Indication: HYPERCHOLESTEROLAEMIA

REACTIONS (4)
  - DEHYDRATION [None]
  - DIARRHOEA [None]
  - PLEURAL EFFUSION [None]
  - PYREXIA [None]
